FAERS Safety Report 12659007 (Version 2)
Quarter: 2016Q3

REPORT INFORMATION
  Report Type: Spontaneous
  Country: US (occurrence: US)
  Receive Date: 20160816
  Receipt Date: 20160916
  Transmission Date: 20161109
  Serious: No
  Sender: FDA-Public Use
  Company Number: US-PFIZER INC-2016382345

PATIENT
  Age: 69 Year
  Sex: Female

DRUGS (2)
  1. ERYTHROMYCIN LACTOBIONATE [Suspect]
     Active Substance: ERYTHROMYCIN LACTOBIONATE
     Dosage: UNK
  2. ERYTHROMYCIN. [Suspect]
     Active Substance: ERYTHROMYCIN
     Dosage: UNK

REACTIONS (2)
  - Urticaria [Unknown]
  - Drug hypersensitivity [Not Recovered/Not Resolved]

NARRATIVE: CASE EVENT DATE: 1978
